FAERS Safety Report 7937049-8 (Version None)
Quarter: 2011Q4

REPORT INFORMATION
  Report Type: 
  Country: None (occurrence: None)
  Receive Date: 20111123
  Receipt Date: 20111110
  Transmission Date: 20120403
  Serious: Yes (Death, Other)
  Sender: FDA-Public Use
  Company Number: CA-ROCHE-774674

PATIENT
  Sex: Male
  Weight: 105.33 kg

DRUGS (15)
  1. TEMODAL [Concomitant]
  2. PROCARBAZINE HYDROCHLORIDE [Concomitant]
  3. TEMOZOLOMIDE [Concomitant]
  4. PLAVIX [Concomitant]
  5. LIPITOR [Concomitant]
  6. AVASTIN [Suspect]
     Route: 042
  7. AVASTIN [Suspect]
     Route: 042
  8. DIPHENHYDRAMINE HCL [Concomitant]
     Indication: PREMEDICATION
     Route: 048
     Dates: start: 20110429, end: 20110429
  9. ACETAMINOPHEN [Concomitant]
     Indication: PREMEDICATION
     Route: 048
     Dates: start: 20110429, end: 20110429
  10. METHYLPREDNISOLONE [Concomitant]
     Route: 042
     Dates: start: 20110902, end: 20110902
  11. AVASTIN [Suspect]
     Indication: GLIOBLASTOMA
     Dosage: FORM: INFUSION OTHER INDICATION: GLIOBLASTOMA
     Route: 042
     Dates: start: 20101112, end: 20110916
  12. KEPPRA [Concomitant]
  13. METHYLPREDNISOLONE [Concomitant]
     Indication: PREMEDICATION
     Route: 042
     Dates: start: 20110429, end: 20110429
  14. ZOFRAN [Concomitant]
  15. AVASTIN [Suspect]
     Route: 042

REACTIONS (19)
  - DEEP VEIN THROMBOSIS [None]
  - BLOOD GLUCOSE INCREASED [None]
  - MEAN PLATELET VOLUME DECREASED [None]
  - SERUM FERRITIN INCREASED [None]
  - DYSPNOEA [None]
  - GAMMA-GLUTAMYLTRANSFERASE INCREASED [None]
  - BRAIN OEDEMA [None]
  - ALANINE AMINOTRANSFERASE INCREASED [None]
  - HIGH DENSITY LIPOPROTEIN DECREASED [None]
  - BLOOD BILIRUBIN INCREASED [None]
  - RED BLOOD CELL SEDIMENTATION RATE INCREASED [None]
  - BLOOD TRIGLYCERIDES INCREASED [None]
  - IRON BINDING CAPACITY UNSATURATED INCREASED [None]
  - THYROXINE FREE DECREASED [None]
  - BLOOD CREATINE PHOSPHOKINASE INCREASED [None]
  - ASPARTATE AMINOTRANSFERASE INCREASED [None]
  - TRANSFERRIN SATURATION DECREASED [None]
  - BLOOD TEST ABNORMAL [None]
  - DEATH [None]
